FAERS Safety Report 15525434 (Version 1)
Quarter: 2018Q4

REPORT INFORMATION
  Report Type: Report from Study
  Country: US (occurrence: US)
  Receive Date: 20181019
  Receipt Date: 20181019
  Transmission Date: 20190205
  Serious: Yes (Other)
  Sender: FDA-Public Use
  Company Number: US-BAUSCH-BL-2018-027983

PATIENT
  Age: 61 Year
  Sex: Female
  Weight: 56.75 kg

DRUGS (4)
  1. SILIQ [Suspect]
     Active Substance: BRODALUMAB
     Indication: PSORIASIS
     Dosage: 210 MILLIGRAM/ 1.5 ML PREFILLED SYRINGES
     Route: 058
     Dates: start: 20180705
  2. CRESTOR [Concomitant]
     Active Substance: ROSUVASTATIN CALCIUM
     Indication: PRODUCT USED FOR UNKNOWN INDICATION
  3. SILIQ [Suspect]
     Active Substance: BRODALUMAB
     Dosage: 210 MILLIGRAM/ 1.5 ML PREFILLED SYRINGES; MAINTENANCE DOSE
     Route: 058
     Dates: start: 20180802
  4. SILIQ [Suspect]
     Active Substance: BRODALUMAB
     Dosage: RECENT SHOT OF SILIQ
     Route: 058
     Dates: start: 20180927

REACTIONS (2)
  - Psoriasis [Not Recovered/Not Resolved]
  - Drug effect incomplete [Not Recovered/Not Resolved]

NARRATIVE: CASE EVENT DATE: 20180913
